FAERS Safety Report 16691147 (Version 2)
Quarter: 2025Q4

REPORT INFORMATION
  Report Type: Spontaneous
  Country: EU (occurrence: EU)
  Receive Date: 20190812
  Receipt Date: 20251030
  Transmission Date: 20260117
  Serious: Yes (Death, Other)
  Sender: AUROBINDO
  Company Number: EU-AUROBINDO-AUR-APL-2019-052131

PATIENT
  Sex: Female

DRUGS (3)
  1. OMEPRAZOLE [Suspect]
     Active Substance: OMEPRAZOLE
     Indication: Abdominal pain
     Dosage: 20 MILLIGRAM, (20 MG, UNK)
     Route: 065
  2. METOCLOPRAMIDE HYDROCHLORIDE [Suspect]
     Active Substance: METOCLOPRAMIDE HYDROCHLORIDE
     Indication: Abdominal pain
     Dosage: 10 MILLIGRAM, (10 MG, UNK)
     Route: 065
  3. ACETAMINOPHEN [Concomitant]
     Active Substance: ACETAMINOPHEN
     Indication: Abdominal pain
     Dosage: UNK
     Route: 065

REACTIONS (7)
  - Volvulus [Fatal]
  - Vomiting [Fatal]
  - Nausea [Fatal]
  - Insomnia [Fatal]
  - Abdominal pain upper [Fatal]
  - Malaise [Fatal]
  - Product use in unapproved indication [Unknown]

NARRATIVE: CASE EVENT DATE: 20171013
